FAERS Safety Report 8507715-4 (Version None)
Quarter: 2012Q2

REPORT INFORMATION
  Report Type: 
  Country: None (occurrence: None)
  Receive Date: 20120405
  Receipt Date: 20090803
  Transmission Date: 20120825
  Serious: Yes (Other)
  Sender: FDA-Public Use
  Company Number: PHEH2009US08848

PATIENT
  Sex: Female

DRUGS (2)
  1. ACETAMINOPHEN [Concomitant]
  2. RECLAST [Suspect]
     Dates: start: 20090731

REACTIONS (5)
  - PYREXIA [None]
  - HEADACHE [None]
  - ARTHRALGIA [None]
  - MYALGIA [None]
  - PAIN [None]
